FAERS Safety Report 16057089 (Version 2)
Quarter: 2019Q1

REPORT INFORMATION
  Report Type: Spontaneous
  Country: US (occurrence: US)
  Receive Date: 20190311
  Receipt Date: 20190315
  Transmission Date: 20190418
  Serious: Yes (Death, Hospitalization, Other)
  Sender: FDA-Public Use
  Company Number: US-JNJFOC-20190308988

PATIENT
  Age: 76 Year
  Sex: Male

DRUGS (4)
  1. VELCADE [Suspect]
     Active Substance: BORTEZOMIB
     Indication: WALDENSTROM^S MACROGLOBULINAEMIA
     Route: 065
  2. IMBRUVICA [Suspect]
     Active Substance: IBRUTINIB
     Indication: WALDENSTROM^S MACROGLOBULINAEMIA
     Route: 048
  3. IMBRUVICA [Suspect]
     Active Substance: IBRUTINIB
     Indication: WALDENSTROM^S MACROGLOBULINAEMIA
     Route: 048
     Dates: start: 201710, end: 201901
  4. RITUXAN [Suspect]
     Active Substance: RITUXIMAB
     Indication: WALDENSTROM^S MACROGLOBULINAEMIA
     Route: 065

REACTIONS (5)
  - Anaemia [Unknown]
  - Death [Fatal]
  - Off label use [Unknown]
  - Cardiac failure congestive [Unknown]
  - Atrial fibrillation [Unknown]

NARRATIVE: CASE EVENT DATE: 201811
